FAERS Safety Report 12704953 (Version 1)
Quarter: 2016Q3

REPORT INFORMATION
  Report Type: Report from Study
  Country: US (occurrence: US)
  Receive Date: 20160831
  Receipt Date: 20160831
  Transmission Date: 20161109
  Serious: Yes (Hospitalization)
  Sender: FDA-Public Use
  Company Number: US-ABBVIE-16K-163-1693476-00

PATIENT
  Age: 23 Year
  Sex: Male

DRUGS (2)
  1. HUMIRA [Suspect]
     Active Substance: ADALIMUMAB
     Indication: CROHN^S DISEASE
     Route: 058
     Dates: start: 20160225, end: 20160627
  2. HUMIRA [Suspect]
     Active Substance: ADALIMUMAB
     Route: 058
     Dates: start: 201606, end: 201607

REACTIONS (9)
  - Intestinal perforation [Recovering/Resolving]
  - Vomiting [Recovered/Resolved]
  - Nausea [Recovering/Resolving]
  - Crohn^s disease [Recovered/Resolved]
  - Fistula [Recovering/Resolving]
  - Abdominal distension [Recovering/Resolving]
  - Nausea [Recovered/Resolved]
  - Gastrointestinal inflammation [Recovering/Resolving]
  - Infection [Recovered/Resolved]

NARRATIVE: CASE EVENT DATE: 201606
